FAERS Safety Report 24106530 (Version 2)
Quarter: 2024Q3

REPORT INFORMATION
  Report Type: Spontaneous
  Country: FI (occurrence: None)
  Receive Date: 20240717
  Receipt Date: 20240814
  Transmission Date: 20241016
  Serious: Yes (Other)
  Sender: ASTRAZENECA
  Company Number: 2024A157030

PATIENT
  Age: 83 Year
  Sex: Female

DRUGS (1)
  1. PULMICORT TURBUHALER [Suspect]
     Active Substance: BUDESONIDE
     Dosage: 400 MICROG/DOSE INHALATION POWDER 200 PORTIONS; 1-2 DOSES 2 TIMES / DAY
     Route: 055

REACTIONS (3)
  - Cardiac failure [Unknown]
  - Asthma [Recovering/Resolving]
  - Device mechanical issue [Unknown]
